FAERS Safety Report 13433831 (Version 6)
Quarter: 2017Q4

REPORT INFORMATION
  Report Type: Report from Study
  Country: LB (occurrence: LB)
  Receive Date: 20170412
  Receipt Date: 20171005
  Transmission Date: 20180320
  Serious: Yes (Hospitalization, Other)
  Sender: FDA-Public Use
  Company Number: PHHY2014LB169884

PATIENT
  Age: 61 Year
  Sex: Female

DRUGS (14)
  1. ADVIL [Concomitant]
     Active Substance: IBUPROFEN
     Indication: PRODUCT USED FOR UNKNOWN INDICATION
     Dosage: UNK UNK, PRN (SOS)
     Route: 048
  2. RABEC [Concomitant]
     Indication: PRODUCT USED FOR UNKNOWN INDICATION
     Dosage: 20 OT, PRN
     Route: 048
  3. LIPITOR [Concomitant]
     Active Substance: ATORVASTATIN CALCIUM
     Indication: PRODUCT USED FOR UNKNOWN INDICATION
     Dosage: 1 DF, QD
     Route: 048
  4. MG+B6 [Concomitant]
     Indication: PRODUCT USED FOR UNKNOWN INDICATION
     Dosage: 1 DF, QD
     Route: 048
  5. LASIX [Concomitant]
     Active Substance: FUROSEMIDE
     Indication: PRODUCT USED FOR UNKNOWN INDICATION
     Dosage: UNK UNK, PRN (SOS)
     Route: 048
  6. GLUCOPHAGE [Concomitant]
     Active Substance: METFORMIN HYDROCHLORIDE
     Indication: PRODUCT USED FOR UNKNOWN INDICATION
     Dosage: 1 DF, Q12H
     Route: 048
     Dates: start: 201503
  7. EXFORGE [Concomitant]
     Active Substance: AMLODIPINE BESYLATE\VALSARTAN
     Indication: PRODUCT USED FOR UNKNOWN INDICATION
     Dosage: 1 DF, QD
     Route: 048
  8. TENORETIC [Suspect]
     Active Substance: ATENOLOL\CHLORTHALIDONE
     Indication: PRODUCT USED FOR UNKNOWN INDICATION
     Route: 065
  9. GLIVEC [Suspect]
     Active Substance: IMATINIB MESYLATE
     Indication: PRODUCT USED FOR UNKNOWN INDICATION
     Dosage: UNK
     Route: 065
  10. JANUMET [Concomitant]
     Active Substance: METFORMIN HYDROCHLORIDE\SITAGLIPTIN PHOSPHATE
     Indication: PRODUCT USED FOR UNKNOWN INDICATION
     Dosage: 1 DF, Q12H
     Route: 048
     Dates: start: 2016
  11. MONOCINQUE [Concomitant]
     Active Substance: ISOSORBIDE MONONITRATE
     Indication: PRODUCT USED FOR UNKNOWN INDICATION
     Dosage: 1 DF, QD
     Route: 048
  12. TASIGNA [Suspect]
     Active Substance: NILOTINIB
     Indication: PRODUCT USED FOR UNKNOWN INDICATION
     Dosage: 2 DF, Q12H (800 MG/DAY)
     Route: 048
     Dates: start: 201407, end: 201707
  13. ATONIUM [Concomitant]
     Indication: PRODUCT USED FOR UNKNOWN INDICATION
     Dosage: 1 DF, QD
     Route: 048
     Dates: start: 2009, end: 201701
  14. ZYLORIC [Concomitant]
     Active Substance: ALLOPURINOL
     Indication: PRODUCT USED FOR UNKNOWN INDICATION
     Dosage: 1 DF, QD
     Route: 048

REACTIONS (37)
  - Adenoidal hypertrophy [Unknown]
  - Glycosylated haemoglobin increased [Unknown]
  - Hyperglycaemia [Recovering/Resolving]
  - Bronchitis [Recovered/Resolved]
  - Infection [Unknown]
  - Sinusitis [Recovered/Resolved]
  - Dry skin [Not Recovered/Not Resolved]
  - Blood potassium increased [Not Recovered/Not Resolved]
  - Weight decreased [Recovering/Resolving]
  - Pyrexia [Recovered/Resolved]
  - Stenosis [Unknown]
  - Dyspepsia [Recovering/Resolving]
  - Ear disorder [Unknown]
  - Platelet count increased [Recovered/Resolved]
  - Thrombocytosis [Not Recovered/Not Resolved]
  - Dry mouth [Not Recovered/Not Resolved]
  - Anaemia [Recovering/Resolving]
  - Thrombocytopenia [Recovered/Resolved]
  - Skin disorder [Not Recovered/Not Resolved]
  - Fungal infection [Unknown]
  - Hypoglycaemia [Unknown]
  - Rash [Unknown]
  - Dyslipidaemia [Not Recovered/Not Resolved]
  - Influenza [Recovered/Resolved]
  - Epistaxis [Unknown]
  - Palpitations [Unknown]
  - Influenza [Not Recovered/Not Resolved]
  - Chest pain [Recovering/Resolving]
  - Tachycardia [Recovering/Resolving]
  - Hyperglycaemia [Recovered/Resolved]
  - Fluid retention [Unknown]
  - Cough [Not Recovered/Not Resolved]
  - Hypertension [Recovering/Resolving]
  - Dizziness [Recovered/Resolved]
  - Ear pain [Unknown]
  - Hypoacusis [Unknown]
  - Urinary tract infection [Recovered/Resolved]

NARRATIVE: CASE EVENT DATE: 201412
